FAERS Safety Report 18552708 (Version 1)
Quarter: 2020Q4

REPORT INFORMATION
  Report Type: Other
  Country: CA (occurrence: CA)
  Receive Date: 20201127
  Receipt Date: 20201127
  Transmission Date: 20210114
  Serious: Yes (Other)
  Sender: FDA-Public Use
  Company Number: CA-APOTEX-2020AP022248

PATIENT
  Age: 31 Year
  Sex: Female

DRUGS (4)
  1. GEMCITABINE. [Suspect]
     Active Substance: GEMCITABINE
     Indication: DEDIFFERENTIATED LIPOSARCOMA
     Dosage: UNK
     Route: 065
  2. DOCETAXEL. [Suspect]
     Active Substance: DOCETAXEL
     Indication: DEDIFFERENTIATED LIPOSARCOMA
     Dosage: SOLUTION INTRAVENOUS
     Route: 065
  3. REGORAFENIB. [Suspect]
     Active Substance: REGORAFENIB
     Indication: DEDIFFERENTIATED LIPOSARCOMA
     Dosage: UNK
     Route: 065
  4. DOXORUBICIN [Suspect]
     Active Substance: DOXORUBICIN
     Indication: DEDIFFERENTIATED LIPOSARCOMA
     Dosage: SOLUTION INTRAVENOUS
     Route: 065

REACTIONS (3)
  - Product use in unapproved indication [Unknown]
  - Malignant neoplasm progression [Unknown]
  - Dedifferentiated liposarcoma [Unknown]
